FAERS Safety Report 7550208-1 (Version None)
Quarter: 2011Q2

REPORT INFORMATION
  Report Type: 
  Country: None (occurrence: None)
  Receive Date: 20110615
  Receipt Date: 20110614
  Transmission Date: 20111010
  Serious: Yes (Hospitalization, Other)
  Sender: FDA-Public Use
  Company Number: US-UCBSA-034342

PATIENT
  Sex: Female

DRUGS (12)
  1. ROLAIDS [Concomitant]
     Indication: ANTACID THERAPY
  2. KEPPRA XR [Suspect]
     Dosage: INCREASED BY ONE TABLET
     Dates: start: 20110101
  3. KEPPRA [Concomitant]
     Dosage: 1 IN AM AND 2 IN PM
  4. CALCITRIOL [Concomitant]
  5. RESTASIS [Concomitant]
  6. KEPPRA XR [Suspect]
     Dosage: 750MG
     Dates: start: 20100517
  7. VENTOLIN HFA [Concomitant]
     Dosage: 2 PUFFS
  8. AMLODIPINE [Concomitant]
  9. ASPIRIN [Concomitant]
  10. CARBATROL [Concomitant]
  11. SYMBICORT [Concomitant]
  12. SODIUM BICAR [Concomitant]

REACTIONS (1)
  - CEREBROVASCULAR ACCIDENT [None]
